FAERS Safety Report 5221782-5 (Version None)
Quarter: 2007Q1

REPORT INFORMATION
  Report Type: 
  Country: None (occurrence: None)
  Receive Date: 20070125
  Receipt Date: 20070125
  Transmission Date: 20070707
  Serious: Yes (Hospitalization)
  Sender: FDA-Public Use
  Company Number: None

PATIENT
  Sex: Female
  Weight: 55.7924 kg

DRUGS (2)
  1. PEGASYS [Suspect]
     Indication: HEPATITIS C
     Dosage: 180 MCG WEEKLY SQ
     Route: 058
     Dates: start: 20070119, end: 20070121
  2. RIBAVIRIN [Suspect]
     Dosage: 1000 MG DAILY PO
     Route: 048

REACTIONS (3)
  - BLOOD PRESSURE DECREASED [None]
  - CHEST PAIN [None]
  - HEART RATE DECREASED [None]
